FAERS Safety Report 7938375-9 (Version None)
Quarter: 2011Q4

REPORT INFORMATION
  Report Type: 
  Country: None (occurrence: None)
  Receive Date: 20111123
  Receipt Date: 20111118
  Transmission Date: 20120403
  Serious: Yes (Hospitalization)
  Sender: FDA-Public Use
  Company Number: US-GLAXOSMITHKLINE-A0760223A

PATIENT
  Age: 49 Year
  Sex: Male
  Weight: 113.6 kg

DRUGS (9)
  1. AVANDAMET [Suspect]
     Indication: TYPE 2 DIABETES MELLITUS
     Dosage: 1TAB TWICE PER DAY
     Route: 048
     Dates: start: 20040220, end: 20050201
  2. AMARYL [Concomitant]
     Dates: start: 20060907, end: 20061001
  3. CONCERTA [Concomitant]
  4. AVANDIA [Suspect]
     Indication: TYPE 2 DIABETES MELLITUS
     Dosage: 4MG TWICE PER DAY
     Route: 048
     Dates: start: 20050207, end: 20061201
  5. CYMBALTA [Concomitant]
  6. BYETTA [Concomitant]
     Dates: start: 20050829
  7. METFORMIN [Concomitant]
     Dosage: 1000MG UNKNOWN
     Dates: start: 20050207, end: 20070119
  8. CRESTOR [Concomitant]
  9. LOTREL [Concomitant]

REACTIONS (4)
  - CORONARY ARTERY DISEASE [None]
  - MYOCARDIAL INFARCTION [None]
  - HEART INJURY [None]
  - CARDIAC DISORDER [None]
